FAERS Safety Report 8220471-2 (Version None)
Quarter: 2012Q1

REPORT INFORMATION
  Report Type: 
  Country: None (occurrence: None)
  Receive Date: 20120320
  Receipt Date: 20120312
  Transmission Date: 20120608
  Serious: Yes (Death)
  Sender: FDA-Public Use
  Company Number: US-CELGENEUS-163-20785-12031419

PATIENT
  Sex: Female

DRUGS (1)
  1. THALOMID [Suspect]
     Indication: AMYLOIDOSIS
     Route: 048
     Dates: start: 20120207

REACTIONS (1)
  - CARDIAC FAILURE [None]
